FAERS Safety Report 5250057-3 (Version None)
Quarter: 2007Q1

REPORT INFORMATION
  Report Type: 
  Country: None (occurrence: None)
  Receive Date: 20070228
  Receipt Date: 20060508
  Transmission Date: 20070707
  Serious: No
  Sender: FDA-Public Use
  Company Number: US-GLAXOSMITHKLINE-A0591710A

PATIENT
  Age: 44 Year
  Sex: Female

DRUGS (4)
  1. LAMICTAL [Suspect]
     Indication: BIPOLAR DISORDER
     Route: 048
  2. KLONOPIN [Concomitant]
     Dosage: 1MG TWICE PER DAY
     Route: 048
  3. ZOLOFT [Concomitant]
     Dosage: 150MG PER DAY
     Route: 048
  4. SEROQUEL [Concomitant]
     Dosage: 100MG AT NIGHT
     Route: 048

REACTIONS (1)
  - METRORRHAGIA [None]
